FAERS Safety Report 4357439-2 (Version None)
Quarter: 2004Q2

REPORT INFORMATION
  Report Type: 
  Country: None (occurrence: None)
  Receive Date: 20040506
  Receipt Date: 20040426
  Transmission Date: 20050107
  Serious: Yes (Other)
  Sender: FDA-Public Use
  Company Number: THQ2004A00412

PATIENT
  Age: 68 Year
  Sex: Male

DRUGS (13)
  1. PIOGLITAZONE HYDROCHLORIDE [Suspect]
     Indication: DIABETES MELLITUS
     Dosage: 30 MG (1 D)
     Route: 048
     Dates: start: 20030509, end: 20040423
  2. NITROGLYCERIN [Concomitant]
  3. ACETYLSALICYLIC ACID SRT [Concomitant]
  4. GLYBURIDE [Concomitant]
  5. ACEBUTOLOL [Concomitant]
  6. METFORMIN HCL [Concomitant]
  7. LIPITOR [Concomitant]
  8. RAMIPRIL [Concomitant]
  9. COUMADIN [Concomitant]
  10. EFFEXOR-XR (VENLAFAXINE HYROCHLORIDE) [Concomitant]
  11. PARIET (RABEPRAZOLE SODIUM) [Concomitant]
  12. NOVOLIN (INSULIN HUMAN INJECTION, ISOPHANE) [Concomitant]
  13. ... [Concomitant]

REACTIONS (5)
  - DYSPNOEA [None]
  - OEDEMA PERIPHERAL [None]
  - PLEURAL EFFUSION [None]
  - PNEUMONIA [None]
  - PULMONARY OEDEMA [None]
